FAERS Safety Report 7781979-7 (Version None)
Quarter: 2011Q3

REPORT INFORMATION
  Report Type: 
  Country: None (occurrence: None)
  Receive Date: 20110927
  Receipt Date: 20110920
  Transmission Date: 20111222
  Serious: Yes (Other)
  Sender: FDA-Public Use
  Company Number: PHEH2009US13748

PATIENT
  Sex: Female

DRUGS (14)
  1. TRAZODONE HYDROCHLORIDE [Concomitant]
     Dosage: 150 MG, QHS
     Route: 048
  2. WELLBUTRIN [Concomitant]
     Dosage: 150 MG, UNK
  3. ZOMETA [Suspect]
     Indication: BREAST CANCER
     Route: 042
  4. EFFEXOR [Concomitant]
     Dosage: 75 MG, QD
     Route: 048
  5. AROMASIN [Concomitant]
     Dosage: 25 MG, QD
  6. TOPROL-XL [Concomitant]
     Dosage: 50 MG, QD
  7. PRILOSEC [Concomitant]
     Dosage: 20 MG, BID
  8. CYMBALTA [Concomitant]
     Dosage: 30 MG, BID
  9. MULTI-VITAMINS [Concomitant]
  10. FEMARA [Concomitant]
  11. AMBIEN [Concomitant]
     Dosage: 10 MG, QHS
     Route: 048
  12. LEXAPRO [Concomitant]
     Dosage: 20 MG, QD
     Route: 048
  13. ALBUTEROL [Concomitant]
     Dosage: 90 UG, UNK
  14. VICODIN [Concomitant]

REACTIONS (26)
  - ANXIETY [None]
  - GASTROOESOPHAGEAL REFLUX DISEASE [None]
  - ORAL CAVITY FISTULA [None]
  - OSTEOARTHRITIS [None]
  - LUNG NEOPLASM [None]
  - HEPATIC STEATOSIS [None]
  - CYST [None]
  - DEPRESSION [None]
  - OSTEOPENIA [None]
  - BACK PAIN [None]
  - ANHEDONIA [None]
  - PAIN [None]
  - GENERAL PHYSICAL HEALTH DETERIORATION [None]
  - LYMPHADENOPATHY MEDIASTINAL [None]
  - CHRONIC SINUSITIS [None]
  - OSTEOMYELITIS [None]
  - DIZZINESS [None]
  - INJURY [None]
  - HIATUS HERNIA [None]
  - ABDOMINAL PAIN [None]
  - VOCAL CORD PARALYSIS [None]
  - OSTEONECROSIS OF JAW [None]
  - SPINAL OSTEOARTHRITIS [None]
  - JAW FRACTURE [None]
  - LYMPHOEDEMA [None]
  - GASTRITIS [None]
